FAERS Safety Report 9468928 (Version 1)
Quarter: 2013Q3

REPORT INFORMATION
  Report Type: Spontaneous
  Country: FR (occurrence: FR)
  Receive Date: 20130821
  Receipt Date: 20130821
  Transmission Date: 20140515
  Serious: Yes (Other)
  Sender: FDA-Public Use
  Company Number: FR-TEVA-426845ISR

PATIENT
  Age: 91 Year
  Sex: Female

DRUGS (6)
  1. COTRIMOXAZOLE [Suspect]
     Indication: INFECTION
     Dosage: 2 DOSAGE FORMS DAILY;
     Route: 048
     Dates: start: 20130802, end: 20130807
  2. PREVISCAN [Concomitant]
     Dosage: 0.25 X DOSE FOR 3 DAYS AND 0.5 X DOSE THE DAY 4
     Dates: end: 201308
  3. PREVISCAN [Concomitant]
     Dosage: 0.25 X DOSE FOR 3 DAYS AND 0.5 X DOSE THE DAY 4
     Dates: start: 20130808
  4. CARDENSIEL [Concomitant]
  5. ALDACTONE [Concomitant]
  6. LASILIX [Concomitant]
     Dosage: FOR SEVERAL YEARS

REACTIONS (5)
  - International normalised ratio increased [Recovered/Resolved]
  - Fatigue [Unknown]
  - Diarrhoea [Recovering/Resolving]
  - Cough [Unknown]
  - Pallor [Unknown]
